FAERS Safety Report 9852089 (Version 2)
Quarter: 2014Q1

REPORT INFORMATION
  Report Type: Spontaneous
  Country: US (occurrence: US)
  Receive Date: 20140129
  Receipt Date: 20140314
  Transmission Date: 20141002
  Serious: Yes (Disabling, Other)
  Sender: FDA-Public Use
  Company Number: US-ASTRAZENECA-2014SE05118

PATIENT
  Sex: Male

DRUGS (2)
  1. SYMBICORT [Suspect]
     Dosage: 160/4.5 2 PUFFS TWICE DAILY
     Route: 055
  2. 2 OTHER INHALERS [Concomitant]

REACTIONS (8)
  - Cerebrovascular accident [Unknown]
  - Loss of consciousness [Unknown]
  - Road traffic accident [Unknown]
  - Dyspnoea [Unknown]
  - Cardiac disorder [Unknown]
  - Memory impairment [Unknown]
  - Stress [Unknown]
  - Device misuse [Unknown]
